FAERS Safety Report 4596356-X (Version None)
Quarter: 2005Q1

REPORT INFORMATION
  Report Type: 
  Country: None (occurrence: None)
  Receive Date: 20050302
  Receipt Date: 20040414
  Transmission Date: 20050727
  Serious: Yes (Hospitalization)
  Sender: FDA-Public Use
  Company Number: PHBS2004JP05194

PATIENT
  Age: 52 Year
  Sex: Male
  Weight: 54 kg

DRUGS (3)
  1. BENECID [Suspect]
     Indication: GOUT
     Dosage: 750 MG/DAY
     Route: 048
     Dates: start: 20020501, end: 20020520
  2. VOLTAREN [Suspect]
     Indication: GOUT
     Dosage: 75 MG/DAY
     Route: 048
     Dates: start: 20020501, end: 20030520
  3. COLCHICINE [Suspect]
     Indication: GOUT
     Dosage: 1.5 MG/DAY
     Route: 048
     Dates: start: 20020501, end: 20020520

REACTIONS (17)
  - ABDOMINAL PAIN [None]
  - ARTHRALGIA [None]
  - BLOOD AMYLASE INCREASED [None]
  - BLOOD CREATININE INCREASED [None]
  - BLOOD URIC ACID INCREASED [None]
  - C-REACTIVE PROTEIN INCREASED [None]
  - CHOLECYSTITIS [None]
  - ERYTHEMA [None]
  - GOUTY ARTHRITIS [None]
  - JOINT SWELLING [None]
  - PANCREATITIS [None]
  - PYREXIA [None]
  - REBOUND EFFECT [None]
  - RENAL FAILURE [None]
  - SYNOVIAL FLUID CRYSTAL PRESENT [None]
  - VOMITING [None]
  - WHITE BLOOD CELL COUNT INCREASED [None]
